FAERS Safety Report 14254923 (Version 3)
Quarter: 2022Q2

REPORT INFORMATION
  Report Type: Spontaneous
  Country: JP (occurrence: JP)
  Receive Date: 20171206
  Receipt Date: 20220627
  Transmission Date: 20220721
  Serious: Yes (Other)
  Sender: FDA-Public Use
  Company Number: JP-ASTELLAS-2017JP023394AA

PATIENT
  Age: 4 Decade
  Sex: Female

DRUGS (12)
  1. PROGRAF [Suspect]
     Active Substance: TACROLIMUS
     Indication: Systemic lupus erythematosus
     Dosage: 4 MG/DAY, UNKNOWN FREQ.
     Route: 048
  2. PROGRAF [Suspect]
     Active Substance: TACROLIMUS
     Indication: Lupus nephritis
  3. OLMESARTAN MEDOXOMIL [Concomitant]
     Active Substance: OLMESARTAN MEDOXOMIL
     Indication: Product used for unknown indication
     Dosage: 10 MG/DAY, UNKNOWN FREQ.
     Route: 048
  4. PREDNISOLONE [Concomitant]
     Active Substance: PREDNISOLONE
     Indication: Systemic lupus erythematosus
     Dosage: 15 MG/DAY, UNKNOWN FREQ.
     Route: 065
  5. PREDNISOLONE [Concomitant]
     Active Substance: PREDNISOLONE
     Indication: Lupus nephritis
     Dosage: 50 MG/DAY, UNKNOWN FREQ.
     Route: 065
  6. PREDNISOLONE [Concomitant]
     Active Substance: PREDNISOLONE
     Dosage: 12.5 MG/DAY, UNKNOWN FREQ.
     Route: 065
  7. PREDNISOLONE [Concomitant]
     Active Substance: PREDNISOLONE
     Dosage: 10 MG/DAY, UNKNOWN FREQ.
     Route: 065
  8. MIZORIBINE [Concomitant]
     Active Substance: MIZORIBINE
     Indication: Systemic lupus erythematosus
     Dosage: 150 MG/DAY, UNKNOWN FREQ.
     Route: 065
  9. MIZORIBINE [Concomitant]
     Active Substance: MIZORIBINE
     Indication: Lupus nephritis
  10. AMLODIPINE [Concomitant]
     Active Substance: AMLODIPINE BESYLATE
     Indication: Product used for unknown indication
     Dosage: 2.5 MG/DAY, UNKNOWN FREQ.
     Route: 065
  11. AMLODIPINE [Concomitant]
     Active Substance: AMLODIPINE BESYLATE
     Dosage: 5 MG/DAY, UNKNOWN FREQ.
     Route: 065
  12. AMLODIPINE [Concomitant]
     Active Substance: AMLODIPINE BESYLATE
     Dosage: 10 MG/DAY, UNKNOWN FREQ.
     Route: 065

REACTIONS (4)
  - Premature delivery [Unknown]
  - Infertility [Unknown]
  - Maternal exposure during pregnancy [Unknown]
  - Prescribed overdose [Unknown]
